FAERS Safety Report 6181896-2 (Version None)
Quarter: 2009Q2

REPORT INFORMATION
  Report Type: 
  Country: None (occurrence: None)
  Receive Date: 20090421
  Receipt Date: 20090407
  Transmission Date: 20091009
  Serious: Yes (Hospitalization)
  Sender: FDA-Public Use
  Company Number: THYM-1001009

PATIENT
  Age: 38 Year
  Sex: Male
  Weight: 58 kg

DRUGS (4)
  1. THYMOGLOBULIN [Suspect]
     Indication: STEM CELL TRANSPLANT
     Dosage: 2.5 MG/KG, INTRAVENOUS
     Route: 042
     Dates: start: 20090313, end: 20090316
  2. LOXOPROFEN SODIUM (LOXOPROFEN SODIUM) [Concomitant]
  3. HYDROXYZINE HCL [Concomitant]
  4. METHYLPREDNISOLONE 16MG TAB [Concomitant]

REACTIONS (2)
  - SINUS BRADYCARDIA [None]
  - STAPHYLOCOCCAL SEPSIS [None]
